FAERS Safety Report 14759200 (Version 1)
Quarter: 2018Q2

REPORT INFORMATION
  Report Type: Spontaneous
  Country: US (occurrence: US)
  Receive Date: 20180409
  Receipt Date: 20180409
  Transmission Date: 20180711
  Serious: Yes (Life-Threatening, Hospitalization)
  Sender: FDA-Public Use
  Company Number: None

PATIENT
  Age: 59 Year
  Sex: Male
  Weight: 72.2 kg

DRUGS (2)
  1. PROTAMINE [Concomitant]
     Active Substance: PROTAMINE
  2. PROTAMINE [Suspect]
     Active Substance: PROTAMINE
     Dosage: ?          OTHER FREQUENCY:PER PROTOCOL;?
     Route: 042
     Dates: start: 20180125, end: 20180125

REACTIONS (2)
  - Haemodynamic instability [None]
  - Anaphylactic reaction [None]

NARRATIVE: CASE EVENT DATE: 20180125
